FAERS Safety Report 6746408-0 (Version None)
Quarter: 2010Q2

REPORT INFORMATION
  Report Type: 
  Country: None (occurrence: None)
  Receive Date: 20100528
  Receipt Date: 20100507
  Transmission Date: 20101027
  Serious: Yes (Other)
  Sender: FDA-Public Use
  Company Number: ET-PFIZER INC-2010064938

PATIENT
  Age: 25 Year
  Sex: Female

DRUGS (1)
  1. ZITHROMAX [Suspect]
     Indication: TRACHOMA
     Dosage: 4 DF, 1X/DAY
     Route: 048

REACTIONS (5)
  - ASTHENIA [None]
  - BLOOD PRESSURE ABNORMAL [None]
  - DYSPEPSIA [None]
  - LOSS OF CONSCIOUSNESS [None]
  - VOMITING [None]
